FAERS Safety Report 9427926 (Version 5)
Quarter: 2013Q3

REPORT INFORMATION
  Report Type: Spontaneous
  Country: US (occurrence: US)
  Receive Date: 20130730
  Receipt Date: 20130909
  Transmission Date: 20140515
  Serious: Yes (Death)
  Sender: FDA-Public Use
  Company Number: US-PFIZER INC-2013217996

PATIENT
  Age: 87 Year
  Sex: Male

DRUGS (2)
  1. VFEND [Suspect]
     Indication: BRONCHOPULMONARY ASPERGILLOSIS
     Dosage: DAILY
     Route: 048
     Dates: start: 201209
  2. VFEND [Suspect]
     Dosage: 200 MG, 2X/DAY
     Route: 048
     Dates: start: 20121218

REACTIONS (3)
  - Disease progression [Fatal]
  - Bronchopulmonary aspergillosis [Fatal]
  - Aspiration [Fatal]
